FAERS Safety Report 13133196 (Version 2)
Quarter: 2017Q2

REPORT INFORMATION
  Report Type: Spontaneous
  Country: IT (occurrence: IT)
  Receive Date: 20170120
  Receipt Date: 20170630
  Transmission Date: 20170830
  Serious: Yes (Hospitalization, Other)
  Sender: FDA-Public Use
  Company Number: PHHY2016IT176673

PATIENT
  Age: 50 Year
  Sex: Male

DRUGS (4)
  1. GILENYA [Suspect]
     Active Substance: FINGOLIMOD HYDROCHLORIDE
     Indication: MULTIPLE SCLEROSIS
     Dosage: 0.5 MG, QD
     Route: 048
     Dates: start: 20111120, end: 20161023
  2. TIOBEC [Concomitant]
     Indication: PRODUCT USED FOR UNKNOWN INDICATION
     Dosage: UNK
     Route: 065
  3. SIRDALUD [Concomitant]
     Active Substance: TIZANIDINE
     Indication: PRODUCT USED FOR UNKNOWN INDICATION
     Dosage: UNK
     Route: 065
  4. XATRAL [Concomitant]
     Active Substance: ALFUZOSIN
     Indication: PRODUCT USED FOR UNKNOWN INDICATION
     Dosage: UNK
     Route: 065

REACTIONS (20)
  - Lymphopenia [Recovering/Resolving]
  - Basophil count decreased [Unknown]
  - Urinary tract infection [Unknown]
  - Secondary progressive multiple sclerosis [Not Recovered/Not Resolved]
  - Hyperpyrexia [Unknown]
  - Urinary incontinence [Unknown]
  - Paresis [Unknown]
  - Multiple sclerosis [Unknown]
  - Gait disturbance [Unknown]
  - Hypokinesia [Unknown]
  - Asthenia [Unknown]
  - Endocarditis staphylococcal [Recovering/Resolving]
  - Neutrophil count increased [Unknown]
  - Eosinophil count decreased [Unknown]
  - Gamma-glutamyltransferase increased [Unknown]
  - Pneumonia [Unknown]
  - Hypoxia [Unknown]
  - Pneumonia mycoplasmal [Unknown]
  - Fall [Unknown]
  - Pruritus [Unknown]

NARRATIVE: CASE EVENT DATE: 2014
